FAERS Safety Report 4436335-6 (Version None)
Quarter: 2004Q3

REPORT INFORMATION
  Report Type: 
  Country: None (occurrence: None)
  Receive Date: 20040728
  Receipt Date: 20031008
  Transmission Date: 20050211
  Serious: Yes (Life-Threatening, Hospitalization)
  Sender: FDA-Public Use
  Company Number: 201397

PATIENT
  Age: 75 Year
  Sex: Male

DRUGS (9)
  1. RITUXAN [Suspect]
     Indication: CHRONIC LYMPHOCYTIC LEUKAEMIA
     Dosage: 50 MG/M2, INTRAVENOUS; 100 MG/M2,INTRAVENOUS;150 MG/M2, INTRAVENOUS;300 MG/M2, INTRAVENOUS
     Route: 042
     Dates: start: 20021211, end: 20021211
  2. RITUXAN [Suspect]
     Indication: CHRONIC LYMPHOCYTIC LEUKAEMIA
     Dosage: 50 MG/M2, INTRAVENOUS; 100 MG/M2,INTRAVENOUS;150 MG/M2, INTRAVENOUS;300 MG/M2, INTRAVENOUS
     Route: 042
     Dates: start: 20021213, end: 20021213
  3. RITUXAN [Suspect]
     Indication: CHRONIC LYMPHOCYTIC LEUKAEMIA
     Dosage: 50 MG/M2, INTRAVENOUS; 100 MG/M2,INTRAVENOUS;150 MG/M2, INTRAVENOUS;300 MG/M2, INTRAVENOUS
     Route: 042
     Dates: start: 20021216, end: 20021216
  4. RITUXAN [Suspect]
     Indication: CHRONIC LYMPHOCYTIC LEUKAEMIA
     Dosage: 50 MG/M2, INTRAVENOUS; 100 MG/M2,INTRAVENOUS;150 MG/M2, INTRAVENOUS;300 MG/M2, INTRAVENOUS
     Route: 042
     Dates: start: 20021218, end: 20021218
  5. RITUXAN [Suspect]
     Dosage: 500 MG/M2,INTRAVENOUS;375 MG/M2,INTRAVENOUS
     Route: 042
     Dates: start: 20021220, end: 20021220
  6. RITUXAN [Suspect]
     Dosage: 500 MG/M2,INTRAVENOUS;375 MG/M2,INTRAVENOUS
     Route: 042
     Dates: start: 20021223, end: 20021223
  7. RITUXAN [Suspect]
     Dosage: 500 MG/M2,INTRAVENOUS;375 MG/M2,INTRAVENOUS
     Route: 042
     Dates: start: 20021227, end: 20021227
  8. RITUXAN [Suspect]
     Dosage: 500 MG/M2,INTRAVENOUS;375 MG/M2,INTRAVENOUS
     Route: 042
     Dates: start: 20021231, end: 20021231
  9. PREDNISONE [Concomitant]

REACTIONS (2)
  - DYSPNOEA [None]
  - INTERSTITIAL LUNG DISEASE [None]
